FAERS Safety Report 8183449-3 (Version None)
Quarter: 2012Q1

REPORT INFORMATION
  Report Type: 
  Country: None (occurrence: None)
  Receive Date: 20120305
  Receipt Date: 20120225
  Transmission Date: 20120608
  Serious: Yes (Hospitalization)
  Sender: FDA-Public Use
  Company Number: US-BAYER-2011-075845

PATIENT
  Age: 33 Year
  Sex: Female
  Weight: 65.76 kg

DRUGS (7)
  1. DAYPRO [Concomitant]
     Dosage: UNK
     Dates: start: 20090909
  2. ZEGERID [Concomitant]
     Dosage: UNK
     Dates: start: 20090909
  3. ROBAXIN [Concomitant]
     Dosage: UNK
     Dates: start: 20090909
  4. LIMBITROL [Concomitant]
     Dosage: UNK
     Dates: start: 20090909
  5. JOLESSA [Concomitant]
     Dosage: UNK
     Dates: start: 20070309
  6. YAZ [Suspect]
     Dosage: UNK
     Route: 048
     Dates: start: 20070101, end: 20100101
  7. VARIVAX [Concomitant]
     Dosage: UNK
     Route: 058
     Dates: start: 20091005, end: 20091110

REACTIONS (6)
  - CHOLECYSTITIS CHRONIC [None]
  - GALLBLADDER INJURY [None]
  - PAIN [None]
  - BILIARY DYSKINESIA [None]
  - MENTAL DISORDER [None]
  - INJURY [None]
